FAERS Safety Report 8278309-3 (Version None)
Quarter: 2012Q2

REPORT INFORMATION
  Report Type: 
  Country: None (occurrence: None)
  Receive Date: 20120412
  Receipt Date: 20110808
  Transmission Date: 20120825
  Serious: No
  Sender: FDA-Public Use
  Company Number: US-ASTRAZENECA-2011SE42003

PATIENT
  Age: 57 Year
  Sex: Male

DRUGS (4)
  1. NEXIUM [Suspect]
     Route: 048
  2. TOPROL-XL [Suspect]
     Route: 048
  3. PRILOSEC OTC [Suspect]
     Route: 048
  4. LOSARTAN POTASSIUM HYDROCHLORIDE [Concomitant]

REACTIONS (5)
  - DRUG DOSE OMISSION [None]
  - DISCOMFORT [None]
  - GASTROOESOPHAGEAL REFLUX DISEASE [None]
  - BARRETT'S OESOPHAGUS [None]
  - DRUG INEFFECTIVE [None]
